FAERS Safety Report 6748215-1 (Version None)
Quarter: 2010Q2

REPORT INFORMATION
  Report Type: 
  Country: None (occurrence: None)
  Receive Date: 20100601
  Receipt Date: 20100517
  Transmission Date: 20101027
  Serious: Yes (Other)
  Sender: FDA-Public Use
  Company Number: US-ASTRAZENECA-2006UW27448

PATIENT
  Age: 318 Month
  Sex: Female
  Weight: 143.3 kg

DRUGS (21)
  1. SEROQUEL [Suspect]
     Indication: DEPRESSION
     Route: 048
     Dates: start: 20030201, end: 20050301
  2. SEROQUEL [Suspect]
     Indication: BIPOLAR DISORDER
     Route: 048
     Dates: start: 20030201, end: 20050301
  3. SEROQUEL [Suspect]
     Indication: SLEEP DISORDER
     Route: 048
     Dates: start: 20030201, end: 20050301
  4. SEROQUEL [Suspect]
     Dosage: 100-800 MG
     Route: 048
     Dates: start: 20030212
  5. SEROQUEL [Suspect]
     Dosage: 100-800 MG
     Route: 048
     Dates: start: 20030212
  6. SEROQUEL [Suspect]
     Dosage: 100-800 MG
     Route: 048
     Dates: start: 20030212
  7. DEPAKOTE ER [Suspect]
     Indication: BIPOLAR II DISORDER
     Dosage: 500-1500 MG
     Dates: start: 20021207, end: 20030101
  8. RISPERDAL [Concomitant]
     Dates: start: 20021101, end: 20030101
  9. EFFEXOR XR [Concomitant]
     Dosage: 37.5-150 MG
     Dates: start: 20030108
  10. KLONOPIN [Concomitant]
     Indication: PANIC DISORDER
     Dosage: 0.5-1 MG
     Dates: start: 20030501
  11. KLONOPIN [Concomitant]
     Indication: ANXIETY
     Dosage: 0.5-1 MG
     Dates: start: 20030501
  12. ALBUTEROL [Concomitant]
     Indication: ASTHMA
     Dates: start: 19970104
  13. SERZONE [Concomitant]
     Dosage: 100-300 MG
     Dates: start: 20030530
  14. NEURONTIN [Concomitant]
     Dosage: 300-800 MG
     Dates: start: 20030603
  15. LAMICTAL [Concomitant]
     Dosage: 25-100 MG
     Dates: start: 20030611
  16. NOVOLIN 70/30 [Concomitant]
     Dosage: 50 TWICE A DAY
     Dates: start: 20030624
  17. NOVOLOG MIX 70/30 [Concomitant]
     Dosage: 12-35 UNITS
     Dates: start: 20030603
  18. GLUCOPHAGE [Concomitant]
     Dosage: 500-1000 MG
     Dates: start: 20030603
  19. LITHIUM [Concomitant]
     Dates: start: 20040718
  20. NAPROSYN [Concomitant]
     Dates: start: 20021202
  21. PRILOSEC [Concomitant]
     Dates: start: 20040524

REACTIONS (8)
  - DIABETES MELLITUS [None]
  - DIABETES MELLITUS INADEQUATE CONTROL [None]
  - DIABETIC KETOACIDOSIS [None]
  - DIABETIC NEUROPATHY [None]
  - GLYCOSYLATED HAEMOGLOBIN INCREASED [None]
  - METABOLIC SYNDROME [None]
  - PANCREATITIS [None]
  - TYPE 2 DIABETES MELLITUS [None]
